FAERS Safety Report 7312894-0 (Version None)
Quarter: 2011Q1

REPORT INFORMATION
  Report Type: 
  Country: None (occurrence: None)
  Receive Date: 20110224
  Receipt Date: 20110211
  Transmission Date: 20110831
  Serious: Yes (Death)
  Sender: FDA-Public Use
  Company Number: ID-ROCHE-747320

PATIENT
  Age: 25 Year
  Sex: Female

DRUGS (15)
  1. VIT B COMPLEX [Concomitant]
     Dates: start: 20100118, end: 20100119
  2. OBH [Concomitant]
     Dates: start: 20100121
  3. MORPHINE [Concomitant]
     Dates: start: 20100123
  4. CEFTRIAXONE SODIUM [Suspect]
     Route: 065
     Dates: start: 20100121, end: 20100123
  5. AMOXICILLIN [Concomitant]
     Dates: start: 20100115, end: 20100119
  6. MEROPENEM [Concomitant]
     Dates: start: 20100123, end: 20100124
  7. RANITIDINE [Concomitant]
     Dates: start: 20100120, end: 20100125
  8. FLUMUCIL [Concomitant]
     Dates: start: 20100123
  9. ONDANSETRON [Concomitant]
     Dates: start: 20100120, end: 20100123
  10. SUCRALFAT [Concomitant]
     Dates: start: 20100122
  11. BISOLVON [Concomitant]
     Dates: start: 20100120
  12. ACETAMINOPHEN [Concomitant]
     Indication: PROPHYLAXIS
     Dates: start: 20100115, end: 20100123
  13. METAMIZOL [Concomitant]
     Dates: start: 20100115, end: 20100119
  14. OSELTAMIVIR [Suspect]
     Indication: AVIAN INFLUENZA
     Route: 065
     Dates: start: 20100120, end: 20100121
  15. AZITHROMYCIN [Concomitant]
     Dates: start: 20100120, end: 20100121

REACTIONS (1)
  - ACUTE RESPIRATORY DISTRESS SYNDROME [None]
